FAERS Safety Report 4872848-0 (Version None)
Quarter: 2005Q4

REPORT INFORMATION
  Report Type: 
  Country: None (occurrence: None)
  Receive Date: 20051201
  Receipt Date: 20050805
  Transmission Date: 20060501
  Serious: No
  Sender: FDA-Public Use
  Company Number: 2005PV000846

PATIENT
  Age: 47 Year
  Sex: Female
  Weight: 106.5953 kg

DRUGS (17)
  1. BYETTA [Suspect]
     Indication: DIABETES MELLITUS NON-INSULIN-DEPENDENT
     Dosage: SEE IMAGE
     Route: 058
     Dates: start: 20050613, end: 20050803
  2. BYETTA [Suspect]
     Indication: DIABETES MELLITUS NON-INSULIN-DEPENDENT
     Dosage: SEE IMAGE
     Route: 058
     Dates: start: 20050803
  3. PRAVACHOL [Concomitant]
  4. LISINOPRIL [Concomitant]
  5. ATENOLOL [Concomitant]
  6. MAYCOR NITROSPRAY [Concomitant]
  7. METFORMIN [Concomitant]
  8. AMARYL [Concomitant]
  9. THYROXINE ^APS^ [Concomitant]
  10. ALLEGRA [Concomitant]
  11. HYOSCYAMINE [Concomitant]
  12. LAMICTAL [Concomitant]
  13. CYMBALTA [Concomitant]
  14. SALICYLATES [Concomitant]
  15. SKELAXIN [Concomitant]
  16. PLAVIX [Concomitant]
  17. ZETIA [Concomitant]

REACTIONS (6)
  - DECREASED APPETITE [None]
  - EARLY SATIETY [None]
  - INJECTION SITE BRUISING [None]
  - INJECTION SITE ERYTHEMA [None]
  - INJECTION SITE HAEMORRHAGE [None]
  - INJECTION SITE VESICLES [None]
